FAERS Safety Report 6144345-6 (Version None)
Quarter: 2009Q2

REPORT INFORMATION
  Report Type: 
  Country: None (occurrence: None)
  Receive Date: 20090406
  Receipt Date: 20090327
  Transmission Date: 20091009
  Serious: Yes (Death)
  Sender: FDA-Public Use
  Company Number: DK-PFIZER INC-2009161719

PATIENT

DRUGS (5)
  1. NORVASC [Suspect]
     Indication: HYPERTENSION
     Route: 048
  2. CENTYL [Concomitant]
     Indication: HYPERTENSION
  3. PERINDOPRIL ERBUMINE [Concomitant]
     Indication: HYPERTENSION
  4. TERBASMIN [Concomitant]
     Indication: ASTHMA
  5. MONTELUKAST [Concomitant]
     Indication: ASTHMA

REACTIONS (2)
  - CARDIAC INFECTION [None]
  - DRUG LEVEL INCREASED [None]
